FAERS Safety Report 6942605-X (Version None)
Quarter: 2010Q3

REPORT INFORMATION
  Report Type: 
  Country: None (occurrence: None)
  Receive Date: 20100811
  Receipt Date: 20100728
  Transmission Date: 20110219
  Serious: Yes (Hospitalization)
  Sender: FDA-Public Use
  Company Number: OMX-2010-00060

PATIENT
  Age: 54 Year
  Sex: Male
  Weight: 154 kg

DRUGS (3)
  1. EVICEL [Suspect]
     Indication: HAEMOSTASIS
  2. PRESSURE REGULATOR [Concomitant]
  3. APPLICATOR [Concomitant]

REACTIONS (2)
  - POST PROCEDURAL INFECTION [None]
  - STAPHYLOCOCCAL INFECTION [None]
